FAERS Safety Report 4849348-7 (Version None)
Quarter: 2005Q4

REPORT INFORMATION
  Report Type: 
  Country: None (occurrence: None)
  Receive Date: 20051207
  Receipt Date: 20051127
  Transmission Date: 20060501
  Serious: Yes (Hospitalization, Other)
  Sender: FDA-Public Use
  Company Number: 2005162121

PATIENT
  Age: 64 Year
  Sex: Male
  Weight: 88.4514 kg

DRUGS (7)
  1. XANAX [Suspect]
     Indication: ANXIETY
  2. DILANTIN [Suspect]
     Indication: CONVULSION
  3. VIAGRA [Suspect]
     Indication: SEXUAL DYSFUNCTION
     Dosage: (50 MG)
  4. MIDRIN (DICHLORALPHENAZONE, ISOMETHEPTENE, PARACETAMOL) [Concomitant]
  5. DITROPAN [Concomitant]
  6. CIALIS [Concomitant]
  7. DEPAKOTE [Concomitant]

REACTIONS (9)
  - ANGER [None]
  - BLADDER DISORDER [None]
  - DEPRESSION [None]
  - DRUG INEFFECTIVE [None]
  - MEMORY IMPAIRMENT [None]
  - MIGRAINE [None]
  - POLYURIA [None]
  - SEXUAL DYSFUNCTION [None]
  - SUICIDE ATTEMPT [None]
